FAERS Safety Report 6756906-1 (Version None)
Quarter: 2010Q2

REPORT INFORMATION
  Report Type: 
  Country: None (occurrence: None)
  Receive Date: 20100604
  Receipt Date: 20100529
  Transmission Date: 20101027
  Serious: Yes (Death)
  Sender: FDA-Public Use
  Company Number: ES-CELGENEUS-144-50794-10052044

PATIENT
  Sex: Male

DRUGS (6)
  1. VIDAZA [Suspect]
     Route: 050
     Dates: start: 20090202
  2. VIDAZA [Suspect]
     Indication: ACUTE MYELOID LEUKAEMIA
     Route: 050
     Dates: start: 20090514, end: 20100531
  3. ARANESP [Concomitant]
     Indication: DRUG USE FOR UNKNOWN INDICATION
     Route: 065
     Dates: start: 20090403, end: 20090901
  4. ARANESP [Concomitant]
     Route: 065
     Dates: start: 20090716, end: 20091015
  5. NEUPOGEN [Concomitant]
     Route: 065
  6. RED BLOOD CELLS [Concomitant]
     Dosage: 4 TRANSFUSIONS PER MONTH
     Route: 051
     Dates: start: 20090101, end: 20090101

REACTIONS (1)
  - SEPTIC SHOCK [None]
